FAERS Safety Report 6775732-0 (Version None)
Quarter: 2010Q2

REPORT INFORMATION
  Report Type: 
  Country: None (occurrence: None)
  Receive Date: 20100617
  Receipt Date: 20100607
  Transmission Date: 20101027
  Serious: Yes (Hospitalization, Other)
  Sender: FDA-Public Use
  Company Number: US-ABBOTT-10P-163-0618757-00

PATIENT
  Sex: Female
  Weight: 127.12 kg

DRUGS (9)
  1. ZEMPLAR [Suspect]
     Indication: RENAL IMPAIRMENT
     Dosage: 2 MCG ON EVEN DAYS, 1 MCG ON ODD DAYS
     Route: 048
     Dates: start: 20070101
  2. ZEMPLAR [Suspect]
     Indication: HYPERPARATHYROIDISM SECONDARY
  3. LASIX [Concomitant]
     Indication: DIURETIC THERAPY
     Dosage: 80 MG DAILY
  4. DARVON [Concomitant]
     Indication: PAIN
  5. DIOVAN [Concomitant]
     Indication: HYPERTENSION
  6. METOPROLOL [Concomitant]
     Indication: HYPERTENSION
  7. OMEPRAZOLE [Concomitant]
     Indication: GASTROOESOPHAGEAL REFLUX DISEASE
  8. OXYBUTYNIN CHLORIDE [Concomitant]
     Indication: DRUG USE FOR UNKNOWN INDICATION
  9. FISH OIL [Concomitant]
     Indication: SUPPLEMENTATION THERAPY

REACTIONS (4)
  - ASTHENIA [None]
  - CELLULITIS [None]
  - FUNGAL SKIN INFECTION [None]
  - THROMBOSIS [None]
